FAERS Safety Report 15934085 (Version 6)
Quarter: 2023Q1

REPORT INFORMATION
  Report Type: Spontaneous
  Country: US (occurrence: None)
  Receive Date: 20190207
  Receipt Date: 20230117
  Transmission Date: 20230417
  Serious: Yes (Death, Other)
  Sender: FDA-Public Use
  Company Number: 2019SE21281

PATIENT
  Age: 14548 Day
  Sex: Male
  Weight: 127 kg

DRUGS (49)
  1. NEXIUM [Suspect]
     Active Substance: ESOMEPRAZOLE MAGNESIUM
     Indication: Gastrooesophageal reflux disease
     Route: 048
     Dates: start: 201209, end: 201709
  2. NEXIUM [Suspect]
     Active Substance: ESOMEPRAZOLE MAGNESIUM
     Indication: Gastrooesophageal reflux disease
     Route: 048
     Dates: start: 20120905, end: 20170925
  3. NEXIUM [Suspect]
     Active Substance: ESOMEPRAZOLE MAGNESIUM
     Indication: Gastrooesophageal reflux disease
     Route: 048
     Dates: start: 2008, end: 20170925
  4. NEXIUM [Suspect]
     Active Substance: ESOMEPRAZOLE MAGNESIUM
     Indication: Gastrooesophageal reflux disease
     Route: 048
     Dates: start: 20120905
  5. NEXIUM 24HR [Suspect]
     Active Substance: ESOMEPRAZOLE MAGNESIUM
     Indication: Gastrooesophageal reflux disease
     Route: 048
     Dates: start: 20140308, end: 20171231
  6. NEXIUM 24HR [Suspect]
     Active Substance: ESOMEPRAZOLE MAGNESIUM
     Indication: Gastrooesophageal reflux disease
     Route: 048
     Dates: start: 201209, end: 201709
  7. PRILOSEC OTC [Suspect]
     Active Substance: OMEPRAZOLE MAGNESIUM
     Indication: Gastrooesophageal reflux disease
     Route: 048
     Dates: start: 201209, end: 201709
  8. PRILOSEC OTC [Suspect]
     Active Substance: OMEPRAZOLE MAGNESIUM
     Indication: Gastrooesophageal reflux disease
     Route: 048
     Dates: start: 20080101, end: 20171231
  9. PROTONIX [Suspect]
     Active Substance: PANTOPRAZOLE SODIUM
     Indication: Gastrooesophageal reflux disease
     Route: 065
     Dates: start: 201209, end: 201709
  10. PROTONIX [Suspect]
     Active Substance: PANTOPRAZOLE SODIUM
     Indication: Gastrooesophageal reflux disease
     Route: 065
     Dates: start: 20080101, end: 20171231
  11. PREVACID 24 HR [Suspect]
     Active Substance: LANSOPRAZOLE
     Indication: Gastrooesophageal reflux disease
     Route: 065
     Dates: start: 20090518, end: 20171231
  12. LASIX [Concomitant]
     Active Substance: FUROSEMIDE
     Dates: start: 20170926
  13. AMBIEN [Concomitant]
     Active Substance: ZOLPIDEM TARTRATE
  14. CITRIC ACID, 1-STEARYL ESTER\SODIUM CITRATE [Concomitant]
     Active Substance: CITRIC ACID, 1-STEARYL ESTER\SODIUM CITRATE
  15. CALCIUM ACETATE [Concomitant]
     Active Substance: CALCIUM ACETATE
     Dates: start: 20171003
  16. ENALAPRIL [Concomitant]
     Active Substance: ENALAPRIL
  17. EPOETIN ALFA [Concomitant]
     Active Substance: ERYTHROPOIETIN
  18. ERGOCALCIFEROL [Concomitant]
     Active Substance: ERGOCALCIFEROL
  19. GEMFIBROZIL [Concomitant]
     Active Substance: GEMFIBROZIL
  20. INSULIN DETEMIR [Concomitant]
     Active Substance: INSULIN DETEMIR
  21. METOPROLOL [Concomitant]
     Active Substance: METOPROLOL
     Dates: start: 20170925
  22. NOVOLOG [Concomitant]
     Active Substance: INSULIN ASPART
     Dates: start: 20170925
  23. RANITIDINE [Concomitant]
     Active Substance: RANITIDINE
     Dates: start: 20170925
  24. SIMVASTATIN [Concomitant]
     Active Substance: SIMVASTATIN
  25. ZOFRAN [Concomitant]
     Active Substance: ONDANSETRON HYDROCHLORIDE
  26. GABAPENTIN [Concomitant]
     Active Substance: GABAPENTIN
     Dates: start: 20170926
  27. ULORIC [Concomitant]
     Active Substance: FEBUXOSTAT
     Dates: start: 20170925
  28. SENSIPAR [Concomitant]
     Active Substance: CINACALCET HYDROCHLORIDE
     Dates: start: 20170925
  29. AMLODIPINE [Concomitant]
     Active Substance: AMLODIPINE BESYLATE
     Dates: start: 20170925
  30. NIACIN [Concomitant]
     Active Substance: NIACIN
     Dates: start: 20170925
  31. ACETAMINOPHEN\HYDROCODONE [Concomitant]
     Active Substance: ACETAMINOPHEN\HYDROCODONE
  32. FOLIC ACID [Concomitant]
     Active Substance: FOLIC ACID
  33. SPIRONOLACTONE [Concomitant]
     Active Substance: SPIRONOLACTONE
  34. ATORVASTATIN [Concomitant]
     Active Substance: ATORVASTATIN
  35. MUPIROCIN [Concomitant]
     Active Substance: MUPIROCIN
  36. LIDOCAINE [Concomitant]
     Active Substance: LIDOCAINE
  37. LEVOFLOXACIN [Concomitant]
     Active Substance: LEVOFLOXACIN
  38. TRIAMCINOLONE [Concomitant]
     Active Substance: TRIAMCINOLONE
  39. VALCYTE [Concomitant]
     Active Substance: VALGANCICLOVIR HYDROCHLORIDE
  40. RENVELA [Concomitant]
     Active Substance: SEVELAMER CARBONATE
  41. FUROSEMIDE [Concomitant]
     Active Substance: FUROSEMIDE
  42. PREDNISONE [Concomitant]
     Active Substance: PREDNISONE
  43. NIFEDIPINE [Concomitant]
     Active Substance: NIFEDIPINE
  44. SEVELAMER [Concomitant]
     Active Substance: SEVELAMER
  45. PHOSLO [Concomitant]
     Active Substance: CALCIUM ACETATE
  46. APAP/ CODEINE [Concomitant]
  47. VANCOMYCIN [Concomitant]
     Active Substance: VANCOMYCIN
  48. ADAPTEC [Concomitant]
  49. NYSTATIN [Concomitant]
     Active Substance: NYSTATIN

REACTIONS (10)
  - End stage renal disease [Fatal]
  - Chronic kidney disease [Not Recovered/Not Resolved]
  - Acute kidney injury [Not Recovered/Not Resolved]
  - Nephrogenic anaemia [Unknown]
  - Renal failure [Unknown]
  - Renal injury [Unknown]
  - Chronic kidney disease-mineral and bone disorder [Unknown]
  - Haematuria [Unknown]
  - Hypervolaemia [Unknown]
  - Renal tubular necrosis [Unknown]

NARRATIVE: CASE EVENT DATE: 20100419
